FAERS Safety Report 24588965 (Version 1)
Quarter: 2024Q4

REPORT INFORMATION
  Report Type: Report from Study
  Country: US (occurrence: US)
  Receive Date: 20241107
  Receipt Date: 20241107
  Transmission Date: 20250115
  Serious: Yes (Other)
  Sender: NOVARTIS
  Company Number: US-002147023-NVSC2024US214943

PATIENT
  Age: 49 Year
  Sex: Female

DRUGS (1)
  1. ILARIS [Suspect]
     Active Substance: CANAKINUMAB
     Indication: Pyrexia
     Dosage: 150 MG, Q4W
     Route: 058
     Dates: start: 20241030

REACTIONS (10)
  - Syncope [Unknown]
  - Illness [Unknown]
  - Feeling hot [Unknown]
  - Flushing [Unknown]
  - Pelvic pain [Unknown]
  - Discomfort [Unknown]
  - Spinal pain [Unknown]
  - Vomiting [Unknown]
  - Diarrhoea [Unknown]
  - Migraine [Recovered/Resolved]

NARRATIVE: CASE EVENT DATE: 20241030
